FAERS Safety Report 24657416 (Version 1)
Quarter: 2024Q4

REPORT INFORMATION
  Report Type: Spontaneous
  Country: GB (occurrence: GB)
  Receive Date: 20241125
  Receipt Date: 20241125
  Transmission Date: 20250114
  Serious: Yes (Other)
  Sender: SANDOZ
  Company Number: GB-MHRA-TPP12104360C7391258YC1732021088434

PATIENT
  Age: 70 Year
  Sex: Female
  Weight: 78 kg

DRUGS (4)
  1. EZETIMIBE [Suspect]
     Active Substance: EZETIMIBE
     Indication: Ill-defined disorder
     Dosage: 10 MG
     Route: 065
  2. ACYCLOVIR [Concomitant]
     Active Substance: ACYCLOVIR
     Indication: Ill-defined disorder
     Dosage: 1 DF, 5 DAY INTERVAL
     Route: 065
     Dates: start: 20240612
  3. ATORVASTATIN [Concomitant]
     Active Substance: ATORVASTATIN
     Indication: Ill-defined disorder
     Dosage: TAKE ONE WEEKLY FOR THE FIRST WEEK THEN ONCE TW...
     Route: 065
     Dates: start: 20241111
  4. SIMVASTATIN [Concomitant]
     Active Substance: SIMVASTATIN
     Indication: Ill-defined disorder
     Dosage: TAKE ONE ON ALTERNATE NIGHTS AND BUILD UP TO ON...
     Route: 065
     Dates: start: 20240923, end: 20241021

REACTIONS (2)
  - Pharyngeal swelling [Recovered/Resolved with Sequelae]
  - Hypersensitivity [Recovered/Resolved with Sequelae]
